FAERS Safety Report 7964250-X (Version None)
Quarter: 2011Q4

REPORT INFORMATION
  Report Type: 
  Country: None (occurrence: None)
  Receive Date: 20111208
  Receipt Date: 20111206
  Transmission Date: 20120403
  Serious: Yes (Other)
  Sender: FDA-Public Use
  Company Number: US-BAYER-2011-103000

PATIENT
  Sex: Female
  Weight: 108.39 kg

DRUGS (4)
  1. BETASERON [Suspect]
     Dosage: 8 MIU, QOD
     Route: 058
  2. ZOLOFT [Concomitant]
     Dosage: 25 MG, UNK
  3. XYZAL [Concomitant]
     Dosage: 5 MG, UNK
  4. PREDNISONE TAB [Concomitant]
     Dosage: 5 MG, UNK

REACTIONS (3)
  - VIITH NERVE PARALYSIS [None]
  - CENTRAL NERVOUS SYSTEM LESION [None]
  - SPEECH DISORDER [None]
